FAERS Safety Report 25803039 (Version 1)
Quarter: 2025Q3

REPORT INFORMATION
  Report Type: Spontaneous
  Country: US (occurrence: US)
  Receive Date: 20250915
  Receipt Date: 20250915
  Transmission Date: 20251020
  Serious: No
  Sender: SAREPTA THERAPEUTICS
  Company Number: US-SAREPTA THERAPEUTICS INC.-SRP2025-005872

PATIENT
  Age: 20 Year
  Sex: Male

DRUGS (1)
  1. VYONDYS 53 [Suspect]
     Active Substance: GOLODIRSEN
     Indication: Duchenne muscular dystrophy
     Route: 042
     Dates: start: 202006, end: 202504

REACTIONS (3)
  - Poor venous access [Unknown]
  - Infusion site pain [Recovered/Resolved]
  - Medication error [Unknown]

NARRATIVE: CASE EVENT DATE: 20250407
